FAERS Safety Report 9600616 (Version 1)
Quarter: 2013Q4

REPORT INFORMATION
  Report Type: Spontaneous
  Country: US (occurrence: US)
  Receive Date: 20131004
  Receipt Date: 20131004
  Transmission Date: 20140711
  Serious: No
  Sender: FDA-Public Use
  Company Number: US-AMGEN-USASP2013035469

PATIENT
  Age: 58 Year
  Sex: Male
  Weight: 92.97 kg

DRUGS (10)
  1. ENBREL [Suspect]
     Indication: PRODUCT USED FOR UNKNOWN INDICATION
     Dosage: 50 MG, QWK
     Route: 058
     Dates: end: 20130510
  2. COMBIGAN [Concomitant]
     Dosage: 0.2/0.5 %, UNK
  3. ANDROGEL [Concomitant]
     Dosage: 1.62 %, UNK
  4. PREDNISONE [Concomitant]
     Dosage: 10 MG, UNK
  5. DIOVAN [Concomitant]
     Dosage: 80 MG, UNK
  6. SIMVASTATIN [Concomitant]
     Dosage: 80 MG, UNK
  7. VITAMIN E                          /00110501/ [Concomitant]
     Dosage: 600 UNIT, UNK
  8. VITAMIN D                          /00107901/ [Concomitant]
     Dosage: 1000 UNIT, UNK
  9. MULTIVITAMINS, PLAIN [Concomitant]
     Dosage: UNK
  10. FOLIC ACID [Concomitant]
     Dosage: UNK

REACTIONS (1)
  - Drug effect decreased [Unknown]
